FAERS Safety Report 6042125-3 (Version None)
Quarter: 2009Q1

REPORT INFORMATION
  Report Type: 
  Country: None (occurrence: None)
  Receive Date: 20090116
  Receipt Date: 20090114
  Transmission Date: 20090719
  Serious: Yes (Death)
  Sender: FDA-Public Use
  Company Number: PHHY2009MX01507

PATIENT
  Age: 81 Year
  Sex: Male

DRUGS (1)
  1. TRILEPTAL [Suspect]
     Indication: EPILEPSY
     Dosage: 300 MG,1.5 TABLET PER DAY
     Route: 048
     Dates: start: 20061101

REACTIONS (2)
  - ASPIRATION [None]
  - PNEUMONIA [None]
